FAERS Safety Report 8152724-0 (Version None)
Quarter: 2012Q1

REPORT INFORMATION
  Report Type: 
  Country: None (occurrence: None)
  Receive Date: 20120221
  Receipt Date: 20120213
  Transmission Date: 20120608
  Serious: Yes (Other)
  Sender: FDA-Public Use
  Company Number: US-BAYER-2012-014658

PATIENT
  Sex: Female

DRUGS (2)
  1. CLIMARA PRO [Suspect]
     Dosage: 1 DF, UNK
     Route: 062
     Dates: start: 20120211
  2. XANAX [Concomitant]
     Dosage: UNK

REACTIONS (3)
  - ANGER [None]
  - BLOOD PRESSURE INCREASED [None]
  - HEART RATE INCREASED [None]
